FAERS Safety Report 8612897-X (Version None)
Quarter: 2012Q3

REPORT INFORMATION
  Report Type: 
  Country: None (occurrence: None)
  Receive Date: 20120822
  Receipt Date: 20110919
  Transmission Date: 20120928
  Serious: No
  Sender: FDA-Public Use
  Company Number: US-ALLERGAN-1112453US

PATIENT
  Age: 87 Year
  Sex: Female

DRUGS (2)
  1. URISOL [Concomitant]
     Dosage: UNK
  2. SANCTURA XR [Suspect]
     Indication: POLLAKIURIA
     Dosage: UNK
     Dates: start: 20110917

REACTIONS (1)
  - DIARRHOEA [None]
